FAERS Safety Report 7175124-9 (Version None)
Quarter: 2010Q4

REPORT INFORMATION
  Report Type: 
  Country: None (occurrence: None)
  Receive Date: 20101220
  Receipt Date: 20100222
  Transmission Date: 20110411
  Serious: No
  Sender: FDA-Public Use
  Company Number: US-AMGEN-TCS393051

PATIENT

DRUGS (4)
  1. ENBREL [Suspect]
     Indication: PSORIASIS
     Dosage: 50 MG, 2 TIMES/WK
     Route: 058
     Dates: start: 20100126
  2. MULTI-VITAMINS [Concomitant]
  3. FISH OIL [Concomitant]
  4. PSEUDOEPHEDRINE HYDROCHLORIDE [Concomitant]

REACTIONS (7)
  - DERMATITIS ATOPIC [None]
  - ERYTHEMA [None]
  - GUTTATE PSORIASIS [None]
  - PETECHIAE [None]
  - RASH ERYTHEMATOUS [None]
  - RASH PUSTULAR [None]
  - SKIN EXFOLIATION [None]
